FAERS Safety Report 12177189 (Version 2)
Quarter: 2016Q2

REPORT INFORMATION
  Report Type: Report from Study
  Country: HN (occurrence: HN)
  Receive Date: 20160314
  Receipt Date: 20160415
  Transmission Date: 20160815
  Serious: Yes (Death, Hospitalization, Other)
  Sender: FDA-Public Use
  Company Number: PHHY2016HN034040

PATIENT
  Age: 37 Year
  Sex: Male
  Weight: 83.4 kg

DRUGS (1)
  1. GLIVEC [Suspect]
     Active Substance: IMATINIB MESYLATE
     Indication: CHRONIC MYELOID LEUKAEMIA
     Dosage: 400 MG, QD
     Route: 048
     Dates: start: 20131025, end: 20160205

REACTIONS (3)
  - Death [Fatal]
  - Gastroenteritis [Unknown]
  - Pancytopenia [Unknown]

NARRATIVE: CASE EVENT DATE: 20160305
